FAERS Safety Report 12072229 (Version 25)
Quarter: 2018Q2

REPORT INFORMATION
  Report Type: Report from Study
  Country: US (occurrence: US)
  Receive Date: 20160212
  Receipt Date: 20180503
  Transmission Date: 20180711
  Serious: Yes (Hospitalization, Other)
  Sender: FDA-Public Use
  Company Number: PHHO2015US016395

PATIENT
  Age: 78 Year
  Sex: Male
  Weight: 77.7 kg

DRUGS (8)
  1. GSK1120212 [Suspect]
     Active Substance: TRAMETINIB
     Dosage: 2 MG, QD
     Route: 048
     Dates: start: 20150717, end: 20160204
  2. GSK1120212 [Suspect]
     Active Substance: TRAMETINIB
     Indication: HAIRY CELL LEUKAEMIA
     Dosage: 2 MG, QD
     Route: 048
     Dates: start: 20141211, end: 20160702
  3. TESTOSTERONE. [Concomitant]
     Active Substance: TESTOSTERONE
     Indication: HYPOGONADISM
     Dosage: 200 MG, QW2
     Route: 030
     Dates: start: 2011
  4. GSK2118436 [Suspect]
     Active Substance: DABRAFENIB
     Dosage: 150 MG, UNK
     Route: 048
     Dates: start: 20150702, end: 20160702
  5. GSK2118436 [Suspect]
     Active Substance: DABRAFENIB
     Dosage: NO TREATMENT
     Route: 048
     Dates: start: 20160703, end: 20160716
  6. GSK2118436 [Suspect]
     Active Substance: DABRAFENIB
     Indication: HAIRY CELL LEUKAEMIA
     Dosage: 150 MG, BID
     Route: 048
     Dates: start: 20141211, end: 20160701
  7. GSK1120212 [Suspect]
     Active Substance: TRAMETINIB
     Dosage: NO TREATMENT
     Route: 048
     Dates: start: 20160703, end: 20160716
  8. GSK2118436 [Suspect]
     Active Substance: DABRAFENIB
     Dosage: 200 MG, UNK
     Route: 048
     Dates: start: 20150717, end: 20160204

REACTIONS (12)
  - Second primary malignancy [Recovered/Resolved]
  - Squamous cell carcinoma of skin [Recovered/Resolved]
  - Squamous cell carcinoma of skin [Recovered/Resolved]
  - Fat necrosis [Recovered/Resolved]
  - Squamous cell carcinoma of skin [Recovered/Resolved]
  - Squamous cell carcinoma of skin [Recovered/Resolved]
  - Squamous cell carcinoma of skin [Recovered/Resolved]
  - Squamous cell carcinoma of skin [Recovered/Resolved]
  - Squamous cell carcinoma of skin [Recovered/Resolved]
  - Fat necrosis [Recovered/Resolved]
  - Squamous cell carcinoma of skin [Recovered/Resolved]
  - Squamous cell carcinoma of skin [Recovered/Resolved]

NARRATIVE: CASE EVENT DATE: 20150304
